FAERS Safety Report 4974658-2 (Version None)
Quarter: 2006Q2

REPORT INFORMATION
  Report Type: 
  Country: None (occurrence: None)
  Receive Date: 20060410
  Receipt Date: 20060330
  Transmission Date: 20061013
  Serious: Yes (Hospitalization)
  Sender: FDA-Public Use
  Company Number: 223304

PATIENT
  Sex: Male

DRUGS (7)
  1. MABTHERA  (RITUXIMAB) CONC FOR SOLUTION FOR INFUSION [Suspect]
     Indication: B-CELL LYMPHOMA
     Dosage: SEE IMAGE
     Dates: start: 20051101
  2. CHLORAMINOPHENE (CHLORAMBUCIL) [Concomitant]
  3. FIALURIDINE (FIALURIDINE) [Concomitant]
  4. NEUPOGEN [Concomitant]
  5. CYCLOPHOSPHAMIDE [Concomitant]
  6. VINCRISTINE [Concomitant]
  7. PREDNISONE [Concomitant]

REACTIONS (11)
  - B-CELL LYMPHOMA [None]
  - CONDITION AGGRAVATED [None]
  - IATROGENIC INJURY [None]
  - LUNG NEOPLASM MALIGNANT [None]
  - METASTASES TO ADRENALS [None]
  - METASTASES TO CENTRAL NERVOUS SYSTEM [None]
  - PANCYTOPENIA [None]
  - PNEUMOTHORAX TRAUMATIC [None]
  - PROCEDURAL COMPLICATION [None]
  - SKIN ULCER [None]
  - SUPERINFECTION [None]
